FAERS Safety Report 7319593-X (Version None)
Quarter: 2011Q1

REPORT INFORMATION
  Report Type: 
  Country: None (occurrence: None)
  Receive Date: 20110228
  Receipt Date: 20100708
  Transmission Date: 20110831
  Serious: No
  Sender: FDA-Public Use
  Company Number: A0863084A

PATIENT
  Age: 27 Year
  Sex: Male

DRUGS (4)
  1. ADDERALL 10 [Concomitant]
  2. WELLBUTRIN XL [Concomitant]
  3. LAMICTAL [Suspect]
     Indication: BIPOLAR DISORDER
     Dosage: 600MG PER DAY
     Route: 048
     Dates: start: 20030601
  4. ALLEGRA [Concomitant]

REACTIONS (7)
  - HEADACHE [None]
  - FATIGUE [None]
  - THINKING ABNORMAL [None]
  - LYMPHADENOPATHY [None]
  - DRUG ADMINISTRATION ERROR [None]
  - DRY EYE [None]
  - PRODUCT QUALITY ISSUE [None]
